FAERS Safety Report 19060572 (Version 1)
Quarter: 2021Q1

REPORT INFORMATION
  Report Type: Spontaneous
  Country: US (occurrence: US)
  Receive Date: 20210326
  Receipt Date: 20210326
  Transmission Date: 20210420
  Serious: No
  Sender: FDA-Public Use
  Company Number: US-SA-2021SA102593

PATIENT
  Sex: Female

DRUGS (15)
  1. AUBAGIO [Suspect]
     Active Substance: TERIFLUNOMIDE
     Indication: MULTIPLE SCLEROSIS
     Dosage: 14 MG, QD
     Route: 048
  2. CYMBALTA [Concomitant]
     Active Substance: DULOXETINE HYDROCHLORIDE
     Dosage: 30 MG
  3. IMITREX [Concomitant]
     Active Substance: SUMATRIPTAN SUCCINATE
     Dosage: 100 MG
  4. MYRBETRIQ [Concomitant]
     Active Substance: MIRABEGRON
     Dosage: 25 MG
  5. SEROQUEL [Concomitant]
     Active Substance: QUETIAPINE FUMARATE
     Dosage: 4000 MG
  6. GABAPENTIN. [Concomitant]
     Active Substance: GABAPENTIN
     Dosage: 400 MG
  7. LOPRESSOR [Concomitant]
     Active Substance: METOPROLOL TARTRATE
     Dosage: 1000 MG
  8. DILTIAZEM. [Concomitant]
     Active Substance: DILTIAZEM
     Dosage: 240 MG
  9. WELLBUTRIN [Concomitant]
     Active Substance: BUPROPION HYDROCHLORIDE
     Dosage: 100 MG
  10. METAMUCIL [Concomitant]
     Active Substance: PLANTAGO SEED
  11. HALDOL [Concomitant]
     Active Substance: HALOPERIDOL
     Dosage: 200 MG
  12. HYDROCODONE [Concomitant]
     Active Substance: HYDROCODONE
  13. MELATONIN [Concomitant]
     Active Substance: MELATONIN
     Dosage: 10 MG
  14. METHIMAZOLE. [Concomitant]
     Active Substance: METHIMAZOLE
     Dosage: 5 MG
  15. ZOFRAN [Concomitant]
     Active Substance: ONDANSETRON HYDROCHLORIDE
     Dosage: 4 MG

REACTIONS (4)
  - Trichorrhexis [Not Recovered/Not Resolved]
  - Alopecia [Not Recovered/Not Resolved]
  - Memory impairment [Not Recovered/Not Resolved]
  - Depression [Not Recovered/Not Resolved]
